FAERS Safety Report 4693488-2 (Version None)
Quarter: 2005Q2

REPORT INFORMATION
  Report Type: 
  Country: None (occurrence: None)
  Receive Date: 20050311
  Receipt Date: 20050311
  Transmission Date: 20051028
  Serious: Yes (Other)
  Sender: FDA-Public Use
  Company Number: None

PATIENT
  Sex: Female
  Weight: 35.8342 kg

DRUGS (1)
  1. SOMA [Suspect]
     Indication: ARTHRITIS
     Dosage: 350MG  3 X DAY  PRN

REACTIONS (1)
  - DRUG INTOLERANCE [None]
